FAERS Safety Report 19869921 (Version 1)
Quarter: 2021Q3

REPORT INFORMATION
  Report Type: Spontaneous
  Country: US (occurrence: US)
  Receive Date: 20210923
  Receipt Date: 20210923
  Transmission Date: 20211014
  Serious: Yes (Other)
  Sender: FDA-Public Use
  Company Number: US-SIMILASANCORP-2021USSIMSPO00055

PATIENT

DRUGS (1)
  1. EAR WAX RELIEF (HOMEOPATHIC) [Suspect]
     Active Substance: HOMEOPATHICS
     Indication: PRODUCT USED FOR UNKNOWN INDICATION

REACTIONS (2)
  - Product packaging issue [Unknown]
  - Product package associated injury [Unknown]
